FAERS Safety Report 18004078 (Version 3)
Quarter: 2020Q3

REPORT INFORMATION
  Report Type: Spontaneous
  Country: US (occurrence: US)
  Receive Date: 20200710
  Receipt Date: 20200820
  Transmission Date: 20201103
  Serious: No
  Sender: FDA-Public Use
  Company Number: US-ASTRAZENECA-2020SE84638

PATIENT
  Sex: Female
  Weight: 64 kg

DRUGS (10)
  1. ENTRESTO [Concomitant]
     Active Substance: SACUBITRIL\VALSARTAN
     Indication: CARDIAC DISORDER
  2. LEVETIRACETAM. [Concomitant]
     Active Substance: LEVETIRACETAM
  3. FARXIGA [Suspect]
     Active Substance: DAPAGLIFLOZIN PROPANEDIOL
     Indication: TYPE 2 DIABETES MELLITUS
     Route: 048
     Dates: start: 2017
  4. FUROSEMIDE. [Concomitant]
     Active Substance: FUROSEMIDE
  5. BYDUREON BCISE [Suspect]
     Active Substance: EXENATIDE
     Indication: TYPE 2 DIABETES MELLITUS
     Route: 058
     Dates: start: 2017
  6. CARVEDILOL. [Concomitant]
     Active Substance: CARVEDILOL
  7. POTASSIUM [Concomitant]
     Active Substance: POTASSIUM
  8. SIMVASTATIN. [Concomitant]
     Active Substance: SIMVASTATIN
  9. SPRIONOLACTONE [Concomitant]
  10. ASPIRIN. [Concomitant]
     Active Substance: ASPIRIN

REACTIONS (5)
  - Weight decreased [Unknown]
  - Device malfunction [Unknown]
  - Product dose omission issue [Unknown]
  - Device leakage [Unknown]
  - Wrong technique in device usage process [Unknown]
